FAERS Safety Report 15341680 (Version 1)
Quarter: 2018Q4

REPORT INFORMATION
  Report Type: Report from Study
  Country: CH (occurrence: CH)
  Receive Date: 20180901
  Receipt Date: 20180901
  Transmission Date: 20190204
  Serious: Yes (Other)
  Sender: FDA-Public Use
  Company Number: CH-SUN PHARMACEUTICAL INDUSTRIES LTD-2018RR-183050

PATIENT
  Sex: Female

DRUGS (6)
  1. ATOSIBAN [Suspect]
     Active Substance: ATOSIBAN
     Dosage: 6 MG/H FOR THE FOLLOWING 45 H
     Route: 064
  2. BRYOPHYLLUM PINNATUM [Suspect]
     Active Substance: HERBALS
     Indication: PRODUCT USED FOR UNKNOWN INDICATION
     Dosage: 50% 4 X 2 DAY
     Route: 064
  3. ATOSIBAN [Suspect]
     Active Substance: ATOSIBAN
     Dosage: 18 MG/H OVER 3 H
     Route: 064
  4. ATOSIBAN [Suspect]
     Active Substance: ATOSIBAN
     Indication: PRODUCT USED FOR UNKNOWN INDICATION
     Dosage: 6.75 MG, INTRAOPERATIVELY
     Route: 064
  5. INDOMETHACIN. [Suspect]
     Active Substance: INDOMETHACIN
     Indication: PRODUCT USED FOR UNKNOWN INDICATION
     Dosage: 100-200 MG PERIOPERATIVELY
     Route: 064
  6. NIFEDIPINE. [Suspect]
     Active Substance: NIFEDIPINE
     Indication: PRODUCT USED FOR UNKNOWN INDICATION
     Dosage: 120 MG, DAILY
     Route: 064

REACTIONS (3)
  - Premature baby [Unknown]
  - Retinopathy congenital [Unknown]
  - Foetal exposure during pregnancy [Unknown]
